FAERS Safety Report 17989576 (Version 1)
Quarter: 2020Q3

REPORT INFORMATION
  Report Type: Spontaneous
  Country: US (occurrence: US)
  Receive Date: 20200707
  Receipt Date: 20200707
  Transmission Date: 20201103
  Serious: Yes (Other)
  Sender: FDA-Public Use
  Company Number: US-BRISTOL-MYERS SQUIBB COMPANY-BMS-2020-051091

PATIENT
  Sex: Male
  Weight: 50.3 kg

DRUGS (1)
  1. HYDREA [Suspect]
     Active Substance: HYDROXYUREA
     Indication: COLITIS
     Dosage: 500 MILLIGRAM
     Route: 048
     Dates: start: 202006

REACTIONS (5)
  - Agitation [Unknown]
  - Screaming [Unknown]
  - Hyperhidrosis [Unknown]
  - Intentional product use issue [Unknown]
  - Hallucination [Unknown]
